FAERS Safety Report 24653783 (Version 1)
Quarter: 2024Q4

REPORT INFORMATION
  Report Type: Spontaneous
  Country: US (occurrence: US)
  Receive Date: 20241122
  Receipt Date: 20241122
  Transmission Date: 20250115
  Serious: No
  Sender: NOVO NORDISK
  Company Number: US-NOVOPROD-1280294

PATIENT
  Sex: Female

DRUGS (3)
  1. TRESIBA [Suspect]
     Active Substance: INSULIN DEGLUDEC
     Dosage: UNK
  2. TRESIBA [Suspect]
     Active Substance: INSULIN DEGLUDEC
     Dosage: UNK
     Route: 058
  3. TRESIBA [Suspect]
     Active Substance: INSULIN DEGLUDEC
     Indication: Product used for unknown indication
     Dosage: INCREASE UNITS IF BS OVER 10-LEAKING PEN
     Route: 058

REACTIONS (11)
  - Spinal stenosis [Unknown]
  - Condition aggravated [Unknown]
  - Arthropod bite [Unknown]
  - Weight increased [Unknown]
  - Hypertension [Unknown]
  - Blood glucose decreased [Recovered/Resolved]
  - Hyperglycaemia [Recovered/Resolved]
  - Device leakage [Unknown]
  - Device issue [Unknown]
  - Blood glucose increased [Unknown]
  - Product quality issue [Unknown]
